FAERS Safety Report 15468389 (Version 1)
Quarter: 2018Q4

REPORT INFORMATION
  Report Type: Spontaneous
  Country: PL (occurrence: PL)
  Receive Date: 20181005
  Receipt Date: 20181005
  Transmission Date: 20190204
  Serious: Yes (Hospitalization, Other)
  Sender: FDA-Public Use
  Company Number: PL-NAPPMUNDI-GBR-2018-0059763

PATIENT
  Age: 24 Year
  Sex: Male

DRUGS (2)
  1. MORPHINE SULFATE. [Suspect]
     Active Substance: MORPHINE SULFATE
     Indication: PRODUCT USED FOR UNKNOWN INDICATION
     Dosage: UNK
     Route: 065
  2. DEXTROMETHORPHAN [Suspect]
     Active Substance: DEXTROMETHORPHAN
     Indication: PRODUCT USED FOR UNKNOWN INDICATION
     Dosage: UNK
     Route: 065

REACTIONS (7)
  - Quadriplegia [Unknown]
  - Miosis [Recovering/Resolving]
  - Rhabdomyolysis [Recovering/Resolving]
  - Electrolyte imbalance [Recovering/Resolving]
  - Respiratory disorder [Recovering/Resolving]
  - Drug abuse [Unknown]
  - Loss of consciousness [Recovering/Resolving]
